FAERS Safety Report 21027814 (Version 1)
Quarter: 2022Q2

REPORT INFORMATION
  Report Type: Spontaneous
  Country: US (occurrence: US)
  Receive Date: 20220630
  Receipt Date: 20220630
  Transmission Date: 20220720
  Serious: No
  Sender: FDA-Public Use
  Company Number: US-PFIZER INC-202200908007

PATIENT
  Age: 82 Year
  Sex: Female

DRUGS (5)
  1. PAXLOVID [Suspect]
     Active Substance: NIRMATRELVIR\RITONAVIR
     Indication: COVID-19 treatment
     Dosage: UNK
     Dates: start: 20220610, end: 20220614
  2. MYSOLINE [Concomitant]
     Active Substance: PRIMIDONE
     Indication: Tremor
     Dosage: 150MG IN THE MORNING, 100MG AT NOON, AND 100MG AT NIGHT
  3. LIPITOR [Concomitant]
     Active Substance: ATORVASTATIN CALCIUM
     Dosage: UNK
  4. SINGULAIR [Concomitant]
     Active Substance: MONTELUKAST SODIUM
     Indication: Asthma
     Dosage: UNK
  5. ASPIRIN [Concomitant]
     Active Substance: ASPIRIN
     Indication: Ventricular dysfunction
     Dosage: 81 MG

REACTIONS (5)
  - Diarrhoea [Recovered/Resolved]
  - Tremor [Recovering/Resolving]
  - Cough [Unknown]
  - Blood pressure systolic decreased [Unknown]
  - Weight decreased [Unknown]

NARRATIVE: CASE EVENT DATE: 20220601
